FAERS Safety Report 11375440 (Version 1)
Quarter: 2015Q3

REPORT INFORMATION
  Report Type: Spontaneous
  Country: HU (occurrence: HU)
  Receive Date: 20150813
  Receipt Date: 20150813
  Transmission Date: 20151125
  Serious: Yes (Other)
  Sender: FDA-Public Use
  Company Number: HU-ELI_LILLY_AND_COMPANY-HU201505005916

PATIENT
  Age: 69 Year
  Sex: Female

DRUGS (5)
  1. ADIMET [Concomitant]
     Dosage: 850 MG, TID
  2. HUMULIN R [Suspect]
     Active Substance: INSULIN HUMAN
     Indication: PRODUCT USED FOR UNKNOWN INDICATION
     Dosage: 14-8-10 IU
     Route: 065
  3. HUMULIN N [Suspect]
     Active Substance: INSULIN HUMAN
     Indication: PRODUCT USED FOR UNKNOWN INDICATION
     Dosage: 14 IU, EACH EVENING
     Route: 065
  4. BISOPROLOL [Concomitant]
     Active Substance: BISOPROLOL
     Dosage: 5 MG, QD
  5. CO-ENALAPRIL [Concomitant]
     Active Substance: ENALAPRIL MALEATE\HYDROCHLOROTHIAZIDE

REACTIONS (10)
  - Chronic kidney disease [Unknown]
  - Hyperhidrosis [Recovered/Resolved]
  - Myositis [Unknown]
  - Diabetic neuropathy [Unknown]
  - Myopathy [Unknown]
  - Hypoglycaemia [Recovered/Resolved]
  - Blood creatine phosphokinase increased [Unknown]
  - Myalgia [Unknown]
  - Diarrhoea [Recovered/Resolved]
  - Drug intolerance [Unknown]

NARRATIVE: CASE EVENT DATE: 2013
